FAERS Safety Report 20531296 (Version 2)
Quarter: 2022Q1

REPORT INFORMATION
  Report Type: Report from Study
  Country: ES (occurrence: ES)
  Receive Date: 20220301
  Receipt Date: 20220329
  Transmission Date: 20220424
  Serious: Yes (Hospitalization, Other)
  Sender: FDA-Public Use
  Company Number: ES-GLAXOSMITHKLINE-ES2022EME029134

PATIENT
  Age: 68 Year
  Sex: Male

DRUGS (1)
  1. BELANTAMAB MAFODOTIN [Suspect]
     Active Substance: BELANTAMAB MAFODOTIN
     Indication: Plasma cell myeloma
     Dosage: 100 MG
     Dates: start: 20220210

REACTIONS (18)
  - Pneumonia [Recovering/Resolving]
  - Sepsis [Recovering/Resolving]
  - Malaise [Recovering/Resolving]
  - Plasmacytoma [Not Recovered/Not Resolved]
  - Fatigue [Recovered/Resolved]
  - Fall [Recovered/Resolved]
  - Dizziness [Recovered/Resolved]
  - Nasal injury [Recovered/Resolved]
  - Limb injury [Recovered/Resolved]
  - Tremor [Recovered/Resolved]
  - Urinary incontinence [Recovered/Resolved]
  - Anal incontinence [Recovered/Resolved]
  - Hypotension [Recovered/Resolved]
  - Disorientation [Unknown]
  - Aggression [Unknown]
  - Back injury [Unknown]
  - Asthenia [Not Recovered/Not Resolved]
  - Eye inflammation [Not Recovered/Not Resolved]

NARRATIVE: CASE EVENT DATE: 20220210
